FAERS Safety Report 5175874-X (Version None)
Quarter: 2006Q4

REPORT INFORMATION
  Report Type: 
  Country: None (occurrence: None)
  Receive Date: 20061215
  Receipt Date: 20060629
  Transmission Date: 20070319
  Serious: Yes (Disabling)
  Sender: FDA-Public Use
  Company Number: US-GLAXOSMITHKLINE-A0611020A

PATIENT
  Age: 59 Year
  Sex: Male
  Weight: 88.6 kg

DRUGS (7)
  1. AVANDIA [Suspect]
     Dosage: 4MG TWICE PER DAY
     Route: 048
     Dates: start: 20041001
  2. GLUCOPHAGE [Concomitant]
     Dosage: 500MG TWICE PER DAY
     Route: 048
  3. LANTUS [Concomitant]
     Dosage: 20U AT NIGHT
     Route: 058
  4. LISINOPRIL AND HYDROCHLOROTHIAZIDE [Concomitant]
     Indication: BLOOD PRESSURE
     Route: 048
  5. CHLORTHALIDONE [Concomitant]
     Indication: BLOOD PRESSURE
  6. HYDROCODONE + ACETAMINOPHEN [Concomitant]
  7. SILDENAFIL CITRATE [Concomitant]

REACTIONS (7)
  - BLINDNESS [None]
  - CATARACT [None]
  - DIABETIC RETINOPATHY [None]
  - MACULAR OEDEMA [None]
  - PRESBYOPIA [None]
  - RETINAL TEAR [None]
  - VISION BLURRED [None]
